FAERS Safety Report 6747983-2 (Version None)
Quarter: 2010Q2

REPORT INFORMATION
  Report Type: 
  Country: None (occurrence: None)
  Receive Date: 20100528
  Receipt Date: 20100527
  Transmission Date: 20101027
  Serious: Yes (Hospitalization, Other)
  Sender: FDA-Public Use
  Company Number: US-MERCK-1001USA03808

PATIENT
  Age: 10 Year
  Sex: Female

DRUGS (12)
  1. FOSAMAX [Suspect]
     Indication: OSTEOSCLEROSIS
     Dosage: 70 MG 1 X WEEK
     Route: 048
     Dates: start: 19981101, end: 19991201
  2. FOSAMAX [Suspect]
     Dosage: 70 MG 1 X WEEK
     Route: 048
     Dates: start: 20081213, end: 20090512
  3. FOSAMAX [Suspect]
     Route: 048
     Dates: start: 20040101, end: 20040101
  4. FOSAMAX [Suspect]
     Indication: HYPERCALCAEMIA
     Dosage: 70 MG 1 X WEEK
     Route: 048
     Dates: start: 19981101, end: 19991201
  5. FOSAMAX [Suspect]
     Dosage: 70 MG 1 X WEEK
     Route: 048
     Dates: start: 20081213, end: 20090512
  6. FOSAMAX [Suspect]
     Route: 048
     Dates: start: 20040101, end: 20040101
  7. SYMBICORT [Concomitant]
     Route: 048
     Dates: start: 20080101, end: 20100101
  8. SYNTHROID [Concomitant]
     Route: 048
     Dates: start: 20080101
  9. RITALIN [Concomitant]
     Route: 048
     Dates: start: 20090101
  10. PROVIGIL [Concomitant]
     Route: 048
     Dates: start: 20090101
  11. PRILOSEC [Concomitant]
     Route: 048
     Dates: start: 20070101
  12. ZOLOFT [Concomitant]
     Route: 048
     Dates: start: 20070101

REACTIONS (14)
  - ARTHROPATHY [None]
  - ASTHMA [None]
  - BONE ATROPHY [None]
  - BONE DISORDER [None]
  - GALLBLADDER DISORDER [None]
  - GASTRIC ULCER [None]
  - HAEMORRHAGE [None]
  - OFF LABEL USE [None]
  - OSTEONECROSIS OF JAW [None]
  - OVERDOSE [None]
  - PAIN IN JAW [None]
  - SPINAL COLUMN INJURY [None]
  - SWELLING [None]
  - TOOTH DISORDER [None]
